FAERS Safety Report 20157433 (Version 2)
Quarter: 2022Q1

REPORT INFORMATION
  Report Type: Report from Study
  Country: JP (occurrence: JP)
  Receive Date: 20211207
  Receipt Date: 20220112
  Transmission Date: 20220423
  Serious: No
  Sender: FDA-Public Use
  Company Number: JP-BAYER-2021A255405

PATIENT
  Age: 55 Year
  Sex: Male

DRUGS (2)
  1. VITRAKVI [Suspect]
     Active Substance: LAROTRECTINIB
     Indication: Neoplasm malignant
     Dosage: 75 MG, BID
     Route: 048
     Dates: start: 20211122
  2. VITRAKVI [Suspect]
     Active Substance: LAROTRECTINIB
     Indication: Illness

REACTIONS (2)
  - Peripheral sensory neuropathy [Recovering/Resolving]
  - Incorrect dose administered [None]
